FAERS Safety Report 5614594-1 (Version None)
Quarter: 2008Q1

REPORT INFORMATION
  Report Type: 
  Country: None (occurrence: None)
  Receive Date: 20080205
  Receipt Date: 20080129
  Transmission Date: 20080703
  Serious: Yes (Disabling, Other)
  Sender: FDA-Public Use
  Company Number: US-GILEAD-2008-0014945

PATIENT
  Sex: Male
  Weight: 108.96 kg

DRUGS (10)
  1. LETAIRIS [Suspect]
     Indication: PULMONARY HYPERTENSION
     Route: 048
     Dates: start: 20071218, end: 20080102
  2. VERAPAMIL [Concomitant]
     Indication: ESSENTIAL HYPERTENSION
     Route: 048
  3. TOPROL-XL [Concomitant]
     Indication: ESSENTIAL HYPERTENSION
     Route: 048
  4. HYZAAR [Concomitant]
     Indication: ESSENTIAL HYPERTENSION
     Dosage: 100-25 MG, ONCE DAILY
     Route: 048
  5. SINGULAIR [Concomitant]
     Indication: ASTHMA
     Route: 048
  6. PREDNISONE TAB [Concomitant]
     Indication: ASTHMA
     Route: 048
  7. XOPENEX [Concomitant]
     Indication: CHRONIC OBSTRUCTIVE PULMONARY DISEASE
     Dosage: 1.25 MG/3 ML, THREE TIMES DAILY
     Route: 055
  8. PULMICORT [Concomitant]
     Indication: CHRONIC OBSTRUCTIVE PULMONARY DISEASE
     Dosage: 0.5 MG/2 ML, TWICE DAILY
  9. ALBUTEROL [Concomitant]
     Indication: CHRONIC OBSTRUCTIVE PULMONARY DISEASE
     Route: 055
  10. THEO-24 [Concomitant]
     Indication: ASTHMA
     Route: 048

REACTIONS (5)
  - ANXIETY [None]
  - DEAFNESS [None]
  - DYSPNOEA [None]
  - EAR DISCOMFORT [None]
  - HEADACHE [None]
